FAERS Safety Report 12237761 (Version 8)
Quarter: 2017Q2

REPORT INFORMATION
  Report Type: Report from Study
  Country: CN (occurrence: CN)
  Receive Date: 20160405
  Receipt Date: 20170522
  Transmission Date: 20170830
  Serious: No
  Sender: FDA-Public Use
  Company Number: PHHY2016CN042747

PATIENT
  Age: 53 Year
  Sex: Male

DRUGS (101)
  1. MYFORTIC [Suspect]
     Active Substance: MYCOPHENOLATE SODIUM
     Dosage: 2880 MG, QD
     Route: 065
     Dates: start: 20160302, end: 20160302
  2. METHYLPREDNISOLONE. [Suspect]
     Active Substance: METHYLPREDNISOLONE
     Dosage: 80 MG, QD
     Route: 065
     Dates: start: 20160221, end: 20160221
  3. METHYLPREDNISOLONE. [Suspect]
     Active Substance: METHYLPREDNISOLONE
     Dosage: 160 MG, QD
     Route: 065
     Dates: start: 20160224, end: 20160224
  4. TACROLIMUS. [Suspect]
     Active Substance: TACROLIMUS
     Dosage: 10.5 MG, QD
     Route: 065
     Dates: start: 20160218, end: 20160218
  5. TACROLIMUS. [Suspect]
     Active Substance: TACROLIMUS
     Dosage: 6 MG, QD
     Route: 065
     Dates: start: 20160221, end: 20160221
  6. TACROLIMUS. [Suspect]
     Active Substance: TACROLIMUS
     Dosage: 6 MG, QD
     Route: 065
     Dates: start: 20160222, end: 20160222
  7. TACROLIMUS. [Suspect]
     Active Substance: TACROLIMUS
     Dosage: 3 MG, QD
     Route: 065
     Dates: start: 20160606, end: 20160804
  8. ATROPINE. [Concomitant]
     Active Substance: ATROPINE
     Indication: PROPHYLAXIS
     Dosage: 1 MG, 1
     Route: 042
     Dates: start: 20160218, end: 20160218
  9. CEFDINIR. [Concomitant]
     Active Substance: CEFDINIR
     Indication: DIARRHOEA
     Dosage: 100 MG, TID
     Route: 048
     Dates: start: 20160302, end: 20160302
  10. FUROSEMIDE. [Concomitant]
     Active Substance: FUROSEMIDE
     Indication: POLYURIA
     Dosage: 20 MG, 1
     Route: 042
     Dates: start: 20160222, end: 20160222
  11. PANTOPRAZOLE SODIUM. [Concomitant]
     Active Substance: PANTOPRAZOLE SODIUM
     Dosage: 40 MG, 1
     Route: 042
     Dates: start: 20160218, end: 20160219
  12. SODIUM BICARBONATE. [Concomitant]
     Active Substance: SODIUM BICARBONATE
     Indication: ANTACID THERAPY
     Dosage: 250 ML, ONCE/SINGLE
     Route: 042
     Dates: start: 20160218, end: 20160218
  13. SUCCINYLATED GELATIN [Concomitant]
     Active Substance: SUCCINYLATED GELATIN
     Indication: ANAESTHESIA
     Dosage: 1500 ML, 1
     Route: 042
     Dates: start: 20160218, end: 20160218
  14. MYFORTIC [Suspect]
     Active Substance: MYCOPHENOLATE SODIUM
     Indication: RENAL TRANSPLANT
     Dosage: 1440 MG, QD
     Route: 065
     Dates: start: 20160217, end: 20160217
  15. MYFORTIC [Suspect]
     Active Substance: MYCOPHENOLATE SODIUM
     Dosage: 1080 MG, QD
     Route: 065
     Dates: start: 20160221, end: 20160221
  16. MYFORTIC [Suspect]
     Active Substance: MYCOPHENOLATE SODIUM
     Dosage: 1440 MG, QD
     Route: 065
     Dates: start: 20161111, end: 20170110
  17. MYFORTIC [Suspect]
     Active Substance: MYCOPHENOLATE SODIUM
     Dosage: 1260 MG, QD
     Route: 065
     Dates: start: 20170111
  18. ADRENALINE HYDROCHLORIDE [Concomitant]
     Indication: PROPHYLAXIS
     Dosage: 2 MG, 1
     Route: 042
     Dates: start: 20160218, end: 20160218
  19. CEFOPERAZONE SODIUM AND SULBACTAM SODIUM [Concomitant]
     Active Substance: CEFOPERAZONE SODIUM\SULBACTAM SODIUM
     Indication: ANTI-INFECTIVE THERAPY
     Dosage: 3 G, 1
     Route: 042
     Dates: start: 20160218, end: 20160218
  20. CEFOPERAZONE SODIUM AND SULBACTAM SODIUM [Concomitant]
     Active Substance: CEFOPERAZONE SODIUM\SULBACTAM SODIUM
     Dosage: 3 G, 1
     Route: 042
     Dates: start: 20160221, end: 20160222
  21. CEFOPERAZONE SODIUM AND SULBACTAM SODIUM [Concomitant]
     Active Substance: CEFOPERAZONE SODIUM\SULBACTAM SODIUM
     Dosage: 1.5 G, BID
     Route: 042
     Dates: start: 20160225, end: 20160229
  22. GENTAMICIN SULFATE. [Concomitant]
     Active Substance: GENTAMICIN SULFATE
     Indication: ANTI-INFECTIVE THERAPY
     Dosage: 160000 IU, ONCE/SINGLE
     Route: 042
     Dates: start: 20160218, end: 20160218
  23. MAGNESIUM ISOGLYCYRRHIZINATE [Concomitant]
     Active Substance: MAGNESIUM ISOGLYCYRRHIZINATE
     Indication: HEPATIC FUNCTION ABNORMAL
     Dosage: 100 MG, 1
     Route: 042
     Dates: start: 20160225
  24. SUFENTANIL CITRATE. [Concomitant]
     Active Substance: SUFENTANIL CITRATE
     Indication: ANAESTHESIA
     Dosage: 100 UG, 1
     Route: 042
     Dates: start: 20160218, end: 20160218
  25. TORASEMIDE [Concomitant]
     Active Substance: TORSEMIDE
     Indication: POLYURIA
     Dosage: 10 MG, QD
     Route: 048
     Dates: start: 20160228
  26. MYFORTIC [Suspect]
     Active Substance: MYCOPHENOLATE SODIUM
     Indication: PROPHYLAXIS AGAINST TRANSPLANT REJECTION
     Dosage: 1440 MG, QD
     Route: 065
     Dates: start: 20160218, end: 20160218
  27. MYFORTIC [Suspect]
     Active Substance: MYCOPHENOLATE SODIUM
     Dosage: 1080 MG, QD
     Route: 065
     Dates: start: 20160228, end: 20160301
  28. MYFORTIC [Suspect]
     Active Substance: MYCOPHENOLATE SODIUM
     Dosage: 1080 MG, QD
     Route: 065
     Dates: start: 20160303, end: 20160309
  29. MYFORTIC [Suspect]
     Active Substance: MYCOPHENOLATE SODIUM
     Dosage: 1440 MG, QD
     Route: 065
     Dates: start: 20160310, end: 20160313
  30. METHYLPREDNISOLONE. [Suspect]
     Active Substance: METHYLPREDNISOLONE
     Dosage: 240 MG, QD
     Route: 065
     Dates: start: 20160219, end: 20160219
  31. TACROLIMUS. [Suspect]
     Active Substance: TACROLIMUS
     Dosage: 10 MG, QD
     Route: 065
     Dates: start: 20160328, end: 20160331
  32. FLUMAZENIL. [Concomitant]
     Active Substance: FLUMAZENIL
     Indication: ANAESTHESIA
     Dosage: 0.5 MG, ONCE/SINGLE
     Route: 042
     Dates: start: 20160218, end: 20160218
  33. FUROSEMIDE. [Concomitant]
     Active Substance: FUROSEMIDE
     Dosage: 20 MG, 1
     Route: 042
     Dates: start: 20160224
  34. LACTULOSE. [Concomitant]
     Active Substance: LACTULOSE
     Indication: CONSTIPATION
     Dosage: 15 ML, FREQUENCY: 2
     Route: 048
     Dates: start: 20160219, end: 20160219
  35. MANNITOL. [Concomitant]
     Active Substance: MANNITOL
     Indication: POLYURIA
     Dosage: 250 ML, ONCE/SINGLE
     Route: 042
     Dates: start: 20160218, end: 20160218
  36. NIFEDIPINE. [Concomitant]
     Active Substance: NIFEDIPINE
     Indication: BLOOD PRESSURE INCREASED
     Dosage: 30 MG, QD
     Route: 048
     Dates: start: 20160222
  37. PANTOPRAZOLE SODIUM. [Concomitant]
     Active Substance: PANTOPRAZOLE SODIUM
     Dosage: 40 MG, BID
     Route: 042
     Dates: start: 20160225
  38. GLUTATHIONE [Concomitant]
     Active Substance: GLUTATHIONE
     Indication: PROPHYLAXIS
     Dosage: 1200 MG, 1
     Route: 042
     Dates: start: 20160218, end: 20160219
  39. GLUTATHIONE SODIUM [Concomitant]
     Active Substance: GLUTATHIONE
     Indication: PROPHYLAXIS
     Dosage: 1200 MG, 1
     Route: 042
     Dates: start: 20160218, end: 20160218
  40. SULFADIAZINE W/SULFAMETHOXAZOLE/TRIMETHOPRIM [Concomitant]
     Indication: INFECTION PROPHYLAXIS
     Dosage: 0.96 G, BID
     Route: 048
     Dates: start: 20160302, end: 20160302
  41. SODIUM LACTATE. [Concomitant]
     Active Substance: SODIUM LACTATE
     Indication: FLUID REPLACEMENT
     Dosage: 1000 ML, ONCE/SINGLE
     Route: 042
     Dates: start: 20160218, end: 20160218
  42. MYFORTIC [Suspect]
     Active Substance: MYCOPHENOLATE SODIUM
     Dosage: 1080 MG, QD
     Route: 065
     Dates: start: 20160225, end: 20160227
  43. MYFORTIC [Suspect]
     Active Substance: MYCOPHENOLATE SODIUM
     Dosage: 1440 MG, QD
     Route: 065
     Dates: start: 20160328, end: 20160410
  44. TACROLIMUS. [Suspect]
     Active Substance: TACROLIMUS
     Indication: PROPHYLAXIS AGAINST TRANSPLANT REJECTION
     Dosage: 3.5 MG, QD
     Route: 065
     Dates: start: 20160217, end: 20160217
  45. TACROLIMUS. [Suspect]
     Active Substance: TACROLIMUS
     Dosage: 5 MG, QD
     Route: 065
     Dates: start: 20160229, end: 20160229
  46. TACROLIMUS. [Suspect]
     Active Substance: TACROLIMUS
     Dosage: 11 MG, QD
     Route: 065
     Dates: start: 20160302, end: 20160302
  47. AMIODARONE HYDROCHLORIDE. [Concomitant]
     Active Substance: AMIODARONE HYDROCHLORIDE
     Dosage: 0.6 G, 1
     Route: 042
     Dates: start: 20160220, end: 20160221
  48. CEFOPERAZONE SODIUM AND SULBACTAM SODIUM [Concomitant]
     Active Substance: CEFOPERAZONE SODIUM\SULBACTAM SODIUM
     Dosage: 3 G, 1
     Route: 042
     Dates: start: 20160218, end: 20160219
  49. CEFOPERAZONE SODIUM AND SULBACTAM SODIUM [Concomitant]
     Active Substance: CEFOPERAZONE SODIUM\SULBACTAM SODIUM
     Dosage: 1.5 G, BID
     Route: 042
     Dates: start: 20160229
  50. CEFOXITIN SODIUM [Concomitant]
     Active Substance: CEFOXITIN SODIUM
     Indication: ANTIBIOTIC PROPHYLAXIS
     Dosage: 2 G, 1
     Route: 065
     Dates: start: 20160217, end: 20160217
  51. PANTOPRAZOLE SODIUM. [Concomitant]
     Active Substance: PANTOPRAZOLE SODIUM
     Indication: PROPHYLAXIS
     Dosage: 40 MG, 1
     Route: 042
     Dates: start: 20160218, end: 20160218
  52. PANTOPRAZOLE SODIUM. [Concomitant]
     Active Substance: PANTOPRAZOLE SODIUM
     Dosage: 40 MG, 1
     Route: 042
     Dates: start: 20160224, end: 20160225
  53. SMECTITE [Concomitant]
     Active Substance: MONTMORILLONITE
     Indication: DIARRHOEA
     Dosage: 6 G, ONCE/SINGLE
     Route: 048
     Dates: start: 20160221, end: 20160221
  54. SODIUM BICARBONATE. [Concomitant]
     Active Substance: SODIUM BICARBONATE
     Indication: ANTACID THERAPY
     Dosage: 0.5 G, ONCE/SINGLE
     Route: 048
     Dates: start: 20160302, end: 20160302
  55. TORASEMIDE [Concomitant]
     Active Substance: TORSEMIDE
     Indication: POLYURIA
     Dosage: 10 MG, FREQUENCY: 2
     Route: 042
     Dates: start: 20160219, end: 20160219
  56. BASILIXIMAB [Suspect]
     Active Substance: BASILIXIMAB
     Indication: PROPHYLAXIS AGAINST TRANSPLANT REJECTION
     Dosage: 20 MG, QD
     Route: 065
     Dates: start: 20160217, end: 20160217
  57. METHYLPREDNISOLONE. [Suspect]
     Active Substance: METHYLPREDNISOLONE
     Dosage: 160 MG, QD
     Route: 065
     Dates: start: 20160220, end: 20160220
  58. PREDNISONE. [Suspect]
     Active Substance: PREDNISONE
     Dosage: 20 MG, QD
     Route: 065
     Dates: start: 20160328, end: 20161013
  59. PREDNISONE. [Suspect]
     Active Substance: PREDNISONE
     Dosage: 25 MG, QD
     Route: 065
     Dates: start: 20161014
  60. TACROLIMUS. [Suspect]
     Active Substance: TACROLIMUS
     Dosage: 6 MG, QD
     Route: 065
     Dates: start: 20160220, end: 20160222
  61. TACROLIMUS. [Suspect]
     Active Substance: TACROLIMUS
     Dosage: 5 MG, QD
     Route: 065
     Dates: start: 20160301, end: 20160301
  62. TACROLIMUS. [Suspect]
     Active Substance: TACROLIMUS
     Dosage: 6 MG, QD
     Route: 065
     Dates: start: 20160401, end: 20160605
  63. AMIODARONE HYDROCHLORIDE. [Concomitant]
     Active Substance: AMIODARONE HYDROCHLORIDE
     Indication: ATRIAL FIBRILLATION
     Dosage: 0.6 G, 2
     Route: 042
     Dates: start: 20160219, end: 20160219
  64. CISATRACURIUM BESILATE [Concomitant]
     Active Substance: CISATRACURIUM BESYLATE
     Indication: ANAESTHESIA
     Dosage: 5 MG, 1
     Route: 042
     Dates: start: 20160218, end: 20160218
  65. DIPHENHYDRAMINE HYDROCHLORIDE. [Concomitant]
     Active Substance: DIPHENHYDRAMINE HYDROCHLORIDE
     Indication: VOMITING
     Dosage: 20 MG, 1
     Route: 030
     Dates: start: 20160221, end: 20160221
  66. NORADRENALIN//NOREPINEPHRINE BITARTRATE [Concomitant]
     Indication: HYPERTENSION
     Dosage: 4 MG, 1
     Route: 042
     Dates: start: 20160218, end: 20160218
  67. REMIFENTANIL HYDROCHLORIDE [Concomitant]
     Active Substance: REMIFENTANIL HYDROCHLORIDE
     Indication: ANAESTHESIA
     Dosage: 4 MG, 1
     Route: 042
     Dates: start: 20160218, end: 20160218
  68. SUCCINYLATED GELATIN [Concomitant]
     Active Substance: SUCCINYLATED GELATIN
     Dosage: 500 ML, 1
     Route: 042
     Dates: start: 20160218, end: 20160218
  69. TROPISETRON HYDROCHLORIDE [Concomitant]
     Active Substance: TROPISETRON HYDROCHLORIDE
     Indication: ANAESTHESIA
     Dosage: 15 MG, 1
     Route: 042
     Dates: start: 20160218, end: 20160218
  70. MYFORTIC [Suspect]
     Active Substance: MYCOPHENOLATE SODIUM
     Dosage: 1440 MG, QD
     Route: 065
     Dates: start: 20160219, end: 20160219
  71. MYFORTIC [Suspect]
     Active Substance: MYCOPHENOLATE SODIUM
     Dosage: 1080 MG, QD
     Route: 065
     Dates: start: 20160220, end: 20160220
  72. MYFORTIC [Suspect]
     Active Substance: MYCOPHENOLATE SODIUM
     Dosage: 1260 MG, QD
     Route: 065
     Dates: start: 20160314, end: 20160327
  73. METHYLPREDNISOLONE. [Suspect]
     Active Substance: METHYLPREDNISOLONE
     Indication: PROPHYLAXIS AGAINST TRANSPLANT REJECTION
     Dosage: 500 MG, QD
     Route: 065
     Dates: start: 20160217, end: 20160217
  74. PREDNISONE. [Suspect]
     Active Substance: PREDNISONE
     Indication: PROPHYLAXIS AGAINST TRANSPLANT REJECTION
     Dosage: 30 MG, QD
     Route: 065
     Dates: start: 20160223, end: 20160301
  75. TACROLIMUS. [Suspect]
     Active Substance: TACROLIMUS
     Dosage: 7 MG, QD
     Route: 065
     Dates: start: 20160219, end: 20160219
  76. PROPOFOL. [Concomitant]
     Active Substance: PROPOFOL
     Indication: ANAESTHESIA
     Dosage: 0.2 G, ONCE/SINGLE
     Route: 042
     Dates: start: 20160218, end: 20160218
  77. HEPARIN SODIUM. [Concomitant]
     Active Substance: HEPARIN SODIUM
     Indication: DEVICE ISSUE
     Dosage: 25000 U, ONCE/SINGLE
     Route: 042
     Dates: start: 20160218, end: 20160218
  78. HEPARIN SODIUM. [Concomitant]
     Active Substance: HEPARIN SODIUM
     Dosage: 37500 U, ONCE/SINGLE
     Route: 061
     Dates: start: 20160229, end: 20160229
  79. GLUTATHIONE [Concomitant]
     Active Substance: GLUTATHIONE
     Dosage: 1200 MG, 1
     Route: 042
     Dates: start: 20160221, end: 20160221
  80. ROCURONIUM BROMIDE. [Concomitant]
     Active Substance: ROCURONIUM BROMIDE
     Indication: ANAESTHESIA
     Dosage: 100 MG, ONCE/SINGLE
     Route: 042
     Dates: start: 20160218, end: 20160218
  81. TRAMADOL HYDROCHLORIDE. [Concomitant]
     Active Substance: TRAMADOL HYDROCHLORIDE
     Indication: ANAESTHESIA
     Dosage: 0.1 G, 1
     Route: 042
     Dates: start: 20160218, end: 20160218
  82. METHYLPREDNISOLONE. [Suspect]
     Active Substance: METHYLPREDNISOLONE
     Dosage: 500 MG, QD
     Route: 065
     Dates: start: 20160218, end: 20160218
  83. TACROLIMUS. [Suspect]
     Active Substance: TACROLIMUS
     Dosage: 5 MG, QD
     Route: 065
     Dates: start: 20160223, end: 20160224
  84. TACROLIMUS. [Suspect]
     Active Substance: TACROLIMUS
     Dosage: 5 MG, QD
     Route: 065
     Dates: start: 20160228, end: 20160228
  85. DESLANOSIDE [Concomitant]
     Active Substance: DESLANOSIDE
     Indication: ATRIAL FIBRILLATION
     Dosage: 0.2 MG, ONCE/SINGLE
     Route: 042
     Dates: start: 20160219, end: 20160219
  86. GLYCERIN. [Concomitant]
     Active Substance: GLYCERIN
     Indication: CONSTIPATION
     Dosage: 110 ML, ONCE/SINGLE
     Route: 054
     Dates: start: 20160217, end: 20160217
  87. ISOSORBIDE MONONITRATE. [Concomitant]
     Active Substance: ISOSORBIDE MONONITRATE
     Indication: CARDIAC DISORDER
     Dosage: 50 MG, 1
     Route: 042
     Dates: start: 20160219, end: 20160219
  88. NEOSTIGMINE METHYLSULFATE. [Concomitant]
     Active Substance: NEOSTIGMINE METHYLSULFATE
     Indication: ANAESTHESIA
     Dosage: 2 MG, ONCE/SINGLE
     Route: 042
     Dates: start: 20160218, end: 20160218
  89. GLUTATHIONE SODIUM [Concomitant]
     Active Substance: GLUTATHIONE
     Dosage: 1200 MG, 1
     Route: 042
     Dates: start: 20160223, end: 20160224
  90. SODIUM LACTATE. [Concomitant]
     Active Substance: SODIUM LACTATE
     Dosage: 5000 ML, ONCE/SINGLE
     Route: 042
     Dates: start: 20160218, end: 20160218
  91. MYFORTIC [Suspect]
     Active Substance: MYCOPHENOLATE SODIUM
     Dosage: 1080 MG, QD
     Route: 065
     Dates: start: 20160222, end: 20160223
  92. MYFORTIC [Suspect]
     Active Substance: MYCOPHENOLATE SODIUM
     Dosage: 1260 MG, QD
     Route: 065
     Dates: start: 20160411, end: 20161110
  93. PREDNISONE. [Suspect]
     Active Substance: PREDNISONE
     Dosage: 35 MG, QD
     Route: 065
     Dates: start: 20160302, end: 20160302
  94. TACROLIMUS. [Suspect]
     Active Substance: TACROLIMUS
     Dosage: 5 MG, QD
     Route: 065
     Dates: start: 20160225, end: 20160227
  95. TACROLIMUS. [Suspect]
     Active Substance: TACROLIMUS
     Dosage: 8 MG, QD
     Route: 065
     Dates: start: 20160310, end: 20160320
  96. BACILLUS LICHENFORMIS [Concomitant]
     Indication: DIARRHOEA
     Dosage: 0.5 G, FREQUENCY: 2
     Route: 048
     Dates: start: 20160221, end: 20160221
  97. BACILLUS LICHENFORMIS [Concomitant]
     Dosage: 0.5 G, FREQUENCY: 3
     Route: 048
     Dates: start: 20160222, end: 20160224
  98. CALCIUM CARBONATE. [Concomitant]
     Active Substance: CALCIUM CARBONATE
     Indication: MINERAL SUPPLEMENTATION
     Dosage: 0.5 G, QD
     Route: 048
     Dates: start: 20160302, end: 20160302
  99. GANCICLOVIR. [Concomitant]
     Active Substance: GANCICLOVIR
     Indication: INFECTION PROPHYLAXIS
     Dosage: 0.5 G, TID
     Route: 048
     Dates: start: 20160302, end: 20160302
  100. MIDAZOLAM [Concomitant]
     Active Substance: MIDAZOLAM HYDROCHLORIDE
     Indication: ANAESTHESIA
     Dosage: 5 MG, 1
     Route: 042
     Dates: start: 20160218, end: 20160218
  101. SODIUM LACTATE. [Concomitant]
     Active Substance: SODIUM LACTATE
     Dosage: 500 ML, ONCE/SINGLE
     Route: 042
     Dates: start: 20160218, end: 20160219

REACTIONS (9)
  - Overdose [Unknown]
  - Chest discomfort [Recovering/Resolving]
  - Haemoglobin decreased [Unknown]
  - Brain natriuretic peptide increased [Unknown]
  - Neutrophil count increased [Unknown]
  - Blood glucose increased [Unknown]
  - Supraventricular extrasystoles [Recovering/Resolving]
  - Chest pain [Unknown]
  - Blood albumin decreased [Unknown]

NARRATIVE: CASE EVENT DATE: 20160219
